FAERS Safety Report 8198061-X (Version None)
Quarter: 2012Q1

REPORT INFORMATION
  Report Type: 
  Country: None (occurrence: None)
  Receive Date: 20120309
  Receipt Date: 20120229
  Transmission Date: 20120608
  Serious: Yes (Hospitalization)
  Sender: FDA-Public Use
  Company Number: US-AMGEN-USASP2012010129

PATIENT
  Age: 76 Year
  Sex: Male
  Weight: 83 kg

DRUGS (5)
  1. CALCIUM CITRATE [Concomitant]
  2. DEGARELIX [Concomitant]
     Dosage: UNK
  3. ZOFRAN [Concomitant]
     Dosage: 8 MG, UNK
  4. XGEVA [Suspect]
     Indication: PROSTATE CANCER
     Dosage: 120 MG, Q4WK
     Route: 030
     Dates: start: 20111102, end: 20111130
  5. VITAMIN D [Concomitant]

REACTIONS (2)
  - INCORRECT ROUTE OF DRUG ADMINISTRATION [None]
  - HYPOCALCAEMIA [None]
